FAERS Safety Report 12724105 (Version 1)
Quarter: 2016Q3

REPORT INFORMATION
  Report Type: Spontaneous
  Country: US (occurrence: US)
  Receive Date: 20160907
  Receipt Date: 20160907
  Transmission Date: 20161109
  Serious: Yes (Disabling)
  Sender: FDA-Public Use
  Company Number: None

PATIENT
  Age: 67 Year
  Sex: Female
  Weight: 71.55 kg

DRUGS (16)
  1. LIDOCAINE PATCHES [Concomitant]
  2. MAGNESIUM OIL [Concomitant]
  3. ACIPHEX [Concomitant]
     Active Substance: RABEPRAZOLE SODIUM
  4. ZOFRAN [Concomitant]
     Active Substance: ONDANSETRON HYDROCHLORIDE
  5. TENS UNIT [Concomitant]
  6. ESTROGEN [Concomitant]
     Active Substance: ESTRONE\SUS SCROFA OVARY
  7. LEVOFLOXACIN. [Suspect]
     Active Substance: LEVOFLOXACIN
     Indication: URINARY TRACT INFECTION
     Route: 048
     Dates: start: 20121114
  8. LINZESS [Concomitant]
     Active Substance: LINACLOTIDE
  9. TYLENOL [Concomitant]
     Active Substance: ACETAMINOPHEN
  10. LAXATIVES [Concomitant]
     Active Substance: UNSPECIFIED INGREDIENT
  11. SUPPOSITORIES [Concomitant]
  12. ALPRAZOLAM. [Concomitant]
     Active Substance: ALPRAZOLAM
  13. ATENOLOL. [Concomitant]
     Active Substance: ATENOLOL
  14. BABY ASPIRIN [Concomitant]
     Active Substance: ASPIRIN
  15. DICYCLOMINE [Concomitant]
     Active Substance: DICYCLOMINE HYDROCHLORIDE
  16. MULTI VITAMINS [Concomitant]
     Active Substance: VITAMINS

REACTIONS (16)
  - Joint stiffness [None]
  - Impaired quality of life [None]
  - Pain [None]
  - Tendon rupture [None]
  - Arthralgia [None]
  - Myalgia [None]
  - Insomnia [None]
  - Activities of daily living impaired [None]
  - Impaired gastric emptying [None]
  - Tendonitis [None]
  - Gastrointestinal motility disorder [None]
  - Walking aid user [None]
  - Anxiety [None]
  - Contraindication to medical treatment [None]
  - Fatigue [None]
  - Rotator cuff syndrome [None]

NARRATIVE: CASE EVENT DATE: 20121114
